FAERS Safety Report 5245685-5 (Version None)
Quarter: 2007Q1

REPORT INFORMATION
  Report Type: 
  Country: None (occurrence: None)
  Receive Date: 20070216
  Receipt Date: 20070205
  Transmission Date: 20070707
  Serious: Yes (Death)
  Sender: FDA-Public Use
  Company Number: 430007M07USA

PATIENT
  Age: 52 Year
  Sex: Female
  Weight: 61.2356 kg

DRUGS (7)
  1. NOVANTRONE [Suspect]
     Indication: MULTIPLE SCLEROSIS
     Dosage: 20 MG/M2
     Dates: start: 20031203, end: 20041101
  2. ZANAFLEX [Concomitant]
  3. DETROL LA [Concomitant]
  4. TOPAMAX [Concomitant]
  5. LEXAPRO [Concomitant]
  6. IMMUNOGLOBULIN (IMMUNOGLOBULIN HUMAN NORMAL) [Concomitant]
  7. WELLBUTRIN XL [Concomitant]

REACTIONS (9)
  - ACUTE MYELOID LEUKAEMIA [None]
  - BLAST CELL CRISIS [None]
  - DIARRHOEA [None]
  - HAEMOPTYSIS [None]
  - HAEMORRHAGE INTRACRANIAL [None]
  - INCOHERENT [None]
  - NAUSEA [None]
  - PUPIL FIXED [None]
  - VOMITING [None]
